FAERS Safety Report 6428343-0 (Version None)
Quarter: 2009Q4

REPORT INFORMATION
  Report Type: 
  Country: None (occurrence: None)
  Receive Date: 20091102
  Receipt Date: 20091022
  Transmission Date: 20100525
  Serious: Yes (Hospitalization)
  Sender: FDA-Public Use
  Company Number: GXKR2009BR11610

PATIENT
  Age: 62 Year
  Sex: Female

DRUGS (1)
  1. ACETYLSALICYLIC ACID SRT [Suspect]
     Indication: TRANSIENT ISCHAEMIC ATTACK

REACTIONS (7)
  - ANEURYSM [None]
  - ARTERIOSCLEROSIS [None]
  - CEREBELLAR HAEMORRHAGE [None]
  - CONFUSIONAL STATE [None]
  - MUSCULOSKELETAL STIFFNESS [None]
  - POST PROCEDURAL COMPLICATION [None]
  - SUBARACHNOID HAEMORRHAGE [None]
